FAERS Safety Report 11184535 (Version 4)
Quarter: 2020Q2

REPORT INFORMATION
  Report Type: Spontaneous
  Country: JP (occurrence: JP)
  Receive Date: 20150612
  Receipt Date: 20200402
  Transmission Date: 20200713
  Serious: Yes (Life-Threatening, Hospitalization, Other)
  Sender: FDA-Public Use
  Company Number: JP-BAYER-2015-160453

PATIENT
  Age: 74 Year
  Sex: Male
  Weight: 53 kg

DRUGS (9)
  1. STIVARGA [Suspect]
     Active Substance: REGORAFENIB
     Indication: COLON CANCER
     Dosage: 120 MG, QD,COMPLETED THE FIRST CYCLE
     Route: 048
     Dates: start: 20150325, end: 20150414
  2. OLMETEC [Suspect]
     Active Substance: OLMESARTAN MEDOXOMIL
     Indication: HYPERTENSION
     Dosage: DAILY DOSE 40 MG
     Route: 048
     Dates: start: 20150120
  3. NIFEDIPINE. [Suspect]
     Active Substance: NIFEDIPINE
     Indication: HYPERTENSION
     Dosage: DAILY DOSE 40 MG
     Route: 048
     Dates: start: 20150201
  4. XELODA [Concomitant]
     Active Substance: CAPECITABINE
     Dosage: DAILY DOSE 2400 MG
     Route: 048
     Dates: start: 20150130, end: 20150310
  5. URSO [Suspect]
     Active Substance: URSODIOL
     Indication: BLOOD BILIRUBIN INCREASED
  6. CAMPTO [Concomitant]
     Active Substance: IRINOTECAN
     Dosage: DAILY DOSE 300 MG
     Route: 041
     Dates: start: 20150130, end: 20150224
  7. AVASTIN [Concomitant]
     Active Substance: BEVACIZUMAB
     Dosage: DAILY DOSE 390 MG
     Route: 041
     Dates: start: 20150130, end: 20150224
  8. URSO [Suspect]
     Active Substance: URSODIOL
     Indication: LIVER DISORDER
     Dosage: 300 MG, DAILY
     Route: 048
     Dates: start: 20150331, end: 20150420
  9. STIVARGA [Suspect]
     Active Substance: REGORAFENIB
     Indication: METASTASES TO PERITONEUM

REACTIONS (6)
  - Off label use [None]
  - Renal impairment [Recovering/Resolving]
  - Venoocclusive liver disease [Recovering/Resolving]
  - Acute hepatic failure [Recovered/Resolved]
  - Decreased appetite [None]
  - Diarrhoea [None]

NARRATIVE: CASE EVENT DATE: 20150331
